FAERS Safety Report 9368962 (Version 1)
Quarter: 2013Q2

REPORT INFORMATION
  Report Type: Spontaneous
  Country: FR (occurrence: None)
  Receive Date: 20130621
  Receipt Date: 20130621
  Transmission Date: 20140414
  Serious: Yes (Death, Life-Threatening, Other)
  Sender: FDA-Public Use
  Company Number: MC201300326

PATIENT
  Age: 82 Year
  Sex: Male

DRUGS (6)
  1. ANGIOMAX, ANGIOX (BIVALIRUDIN) INJECTION [Suspect]
     Indication: ACUTE CORONARY SYNDROME
     Dosage: TREATED IN AMBULANCE, INTRAVENOUS
     Dates: start: 20130504, end: 20130504
  2. ASPEGIC [Suspect]
     Indication: ACUTE CORONARY SYNDROME
     Dosage: 250 MG, TREATED IN AMBULANCE, INTRAVENOUS
     Dates: start: 20130504, end: 20130504
  3. TICAGRELOR [Suspect]
     Indication: ACUTE CORONARY SYNDROME
     Dosage: 90 MG, BID TREATED IN AMBULANCE, ORAL
     Route: 048
     Dates: start: 20130504, end: 20130523
  4. LOVENOX (ENOXAPARIN SODIUM) [Suspect]
     Route: 058
     Dates: start: 20130508, end: 20130523
  5. KARDEGIC [Suspect]
     Route: 048
     Dates: start: 20130504, end: 20130523
  6. HEPARIN (HEPARIN) [Suspect]
     Dosage: LMWH 5000 IU, DURING PROCEDURE
     Dates: start: 20130504, end: 20130504

REACTIONS (11)
  - Septic shock [None]
  - Cardiac failure congestive [None]
  - Ventricular tachycardia [None]
  - Atrial fibrillation [None]
  - Lung infection [None]
  - Respiratory failure [None]
  - Dysuria [None]
  - Bronchial haemorrhage [None]
  - Haematuria [None]
  - Catheter site haemorrhage [None]
  - Haemoglobin decreased [None]
